FAERS Safety Report 5381768-7 (Version None)
Quarter: 2007Q3

REPORT INFORMATION
  Report Type: 
  Country: None (occurrence: None)
  Receive Date: 20070703
  Receipt Date: 20070703
  Transmission Date: 20080115
  Serious: No
  Sender: FDA-Public Use
  Company Number: None

PATIENT
  Age: 51 Year
  Sex: Female

DRUGS (3)
  1. LOTRONEX [Suspect]
  2. LISINOPRIL [Concomitant]
  3. CYMBALTA [Concomitant]

REACTIONS (1)
  - COLITIS ISCHAEMIC [None]
